FAERS Safety Report 6296415-X (Version None)
Quarter: 2009Q3

REPORT INFORMATION
  Report Type: 
  Country: None (occurrence: None)
  Receive Date: 20090803
  Receipt Date: 20090803
  Transmission Date: 20100115
  Serious: Yes (Other)
  Sender: FDA-Public Use
  Company Number: None

PATIENT
  Age: 48 Year
  Sex: Female
  Weight: 42.6381 kg

DRUGS (1)
  1. EFFEXOR [Suspect]
     Indication: HOT FLUSH
     Dosage: 1X DAILY
     Dates: start: 20040702, end: 20040716

REACTIONS (12)
  - ABDOMINAL DISCOMFORT [None]
  - DECREASED APPETITE [None]
  - DRUG INEFFECTIVE [None]
  - DRUG WITHDRAWAL SYNDROME [None]
  - FLUID INTAKE REDUCED [None]
  - HALLUCINATION [None]
  - HYPERHIDROSIS [None]
  - HYPOPHAGIA [None]
  - NAUSEA [None]
  - SENSORY DISTURBANCE [None]
  - VOMITING [None]
  - WEIGHT DECREASED [None]
